FAERS Safety Report 9431992 (Version 2)
Quarter: 2013Q3

REPORT INFORMATION
  Report Type: Spontaneous
  Country: GB (occurrence: None)
  Receive Date: 20130726
  Receipt Date: 20130729
  Transmission Date: 20140515
  Serious: Yes (Hospitalization, Other)
  Sender: FDA-Public Use
  Company Number: AUR-APL-2013-06051

PATIENT
  Age: 58 Year
  Sex: Male

DRUGS (5)
  1. METFORMIN [Suspect]
     Indication: TYPE 2 DIABETES MELLITUS
     Route: 048
  2. RAMIPRIL [Suspect]
     Indication: PRODUCT USED FOR UNKNOWN INDICATION
     Route: 048
  3. BISOPROLOL (BISOPROLOL) [Concomitant]
  4. GLICLAZIDE (GLICLAZIDE) [Concomitant]
  5. SAXAGLIPTIN (DAXAGLIPTIN) [Concomitant]

REACTIONS (3)
  - Dialysis [None]
  - Renal failure acute [None]
  - Nephropathy toxic [None]
